FAERS Safety Report 24360315 (Version 1)
Quarter: 2024Q3

REPORT INFORMATION
  Report Type: Spontaneous
  Country: GB (occurrence: GB)
  Receive Date: 20240925
  Receipt Date: 20240925
  Transmission Date: 20241016
  Serious: Yes (Hospitalization)
  Sender: STRIDES
  Company Number: GB-STRIDES ARCOLAB LIMITED-2024SP012299

PATIENT
  Age: 6 Decade
  Sex: Male

DRUGS (12)
  1. OMEPRAZOLE [Suspect]
     Active Substance: OMEPRAZOLE
     Indication: Product used for unknown indication
     Dosage: 40 MILLIGRAM, QD
     Route: 065
     Dates: start: 2010
  2. OMEPRAZOLE [Suspect]
     Active Substance: OMEPRAZOLE
     Dosage: 20 MILLIGRAM, QD
     Route: 065
     Dates: start: 2021, end: 2021
  3. FLUCLOXACILLIN [Concomitant]
     Active Substance: FLUCLOXACILLIN
     Indication: Folliculitis
     Dosage: 500 MILLIGRAM, TID
     Route: 065
     Dates: start: 2010, end: 2010
  4. FLUCLOXACILLIN [Concomitant]
     Active Substance: FLUCLOXACILLIN
     Indication: Staphylococcal infection
  5. PENICILLIN V [Concomitant]
     Active Substance: PENICILLIN V
     Indication: Folliculitis
     Dosage: UNK
     Route: 065
     Dates: start: 2010, end: 2010
  6. PENICILLIN V [Concomitant]
     Active Substance: PENICILLIN V
     Indication: Staphylococcal infection
  7. PREDNISOLONE [Concomitant]
     Active Substance: PREDNISOLONE
     Indication: Angioedema
     Dosage: 30 MILLIGRAM, QD
     Route: 048
     Dates: start: 2010
  8. PREDNISOLONE [Concomitant]
     Active Substance: PREDNISOLONE
     Indication: Lymphadenopathy
  9. PREDNISOLONE [Concomitant]
     Active Substance: PREDNISOLONE
     Indication: Eczema
  10. MYCOPHENOLIC ACID [Concomitant]
     Active Substance: MYCOPHENOLIC ACID
     Indication: Eczema
     Dosage: 500 MILLIGRAM, BID
     Route: 065
     Dates: start: 2010
  11. TEICOPLANIN [Concomitant]
     Active Substance: TEICOPLANIN
     Indication: Antibiotic prophylaxis
     Dosage: 400 MILLIGRAM
     Route: 065
     Dates: start: 2021, end: 2021
  12. IBUPROFEN [Concomitant]
     Active Substance: IBUPROFEN
     Indication: Pain
     Dosage: 400 MILLIGRAM, TID
     Route: 065
     Dates: start: 2021, end: 2021

REACTIONS (3)
  - Dermatitis exfoliative [Recovered/Resolved]
  - Drug reaction with eosinophilia and systemic symptoms [Recovered/Resolved]
  - Hypersensitivity [Recovered/Resolved]

NARRATIVE: CASE EVENT DATE: 20100101
